FAERS Safety Report 6601206-3 (Version None)
Quarter: 2010Q1

REPORT INFORMATION
  Report Type: 
  Country: None (occurrence: None)
  Receive Date: 20100225
  Receipt Date: 20100217
  Transmission Date: 20100710
  Serious: Yes (Death)
  Sender: FDA-Public Use
  Company Number: IT-BAXTER-2009BH019750

PATIENT
  Age: 61 Year
  Sex: Male

DRUGS (22)
  1. CYCLOPHOSPHAMIDE [Suspect]
     Indication: LYMPHOMA
     Route: 042
     Dates: start: 20090921, end: 20090921
  2. CYCLOPHOSPHAMIDE [Suspect]
     Route: 042
  3. HOLOXAN BAXTER [Suspect]
     Indication: LYMPHOMA
     Route: 042
     Dates: start: 20091016, end: 20091116
  4. HOLOXAN BAXTER [Suspect]
     Route: 042
     Dates: start: 20090601, end: 20090630
  5. ETOPOSIDE [Suspect]
     Indication: LYMPHOMA
     Route: 042
     Dates: start: 20091016, end: 20091116
  6. ETOPOSIDE [Suspect]
     Route: 042
     Dates: start: 20090601, end: 20090630
  7. EPIRUBICIN HYDROCHLORIDE [Suspect]
     Indication: LYMPHOMA
     Route: 042
     Dates: start: 20091016, end: 20091114
  8. RITUXIMAB [Suspect]
     Indication: LYMPHOMA
     Route: 042
  9. RITUXIMAB [Suspect]
     Route: 042
     Dates: start: 20090601, end: 20090630
  10. RITUXIMAB [Suspect]
     Route: 042
     Dates: start: 20090801, end: 20090801
  11. RITUXIMAB [Suspect]
     Route: 042
     Dates: start: 20090921, end: 20090921
  12. ADRIAMYCIN PFS [Suspect]
     Indication: LYMPHOMA
     Route: 042
  13. ADRIAMYCIN PFS [Suspect]
     Route: 042
     Dates: start: 20090921, end: 20090921
  14. VINCRISTINE SULFATE [Suspect]
     Indication: LYMPHOMA
     Route: 042
  15. CARBOPLATIN [Suspect]
     Indication: LYMPHOMA
     Route: 042
     Dates: start: 20090601, end: 20090630
  16. CISPLATIN [Suspect]
     Indication: LYMPHOMA
     Route: 042
     Dates: start: 20090101, end: 20090101
  17. CYTARABINE [Suspect]
     Indication: LYMPHOMA
     Route: 042
     Dates: start: 20090101, end: 20090101
  18. CYTARABINE [Suspect]
     Route: 042
     Dates: start: 20090801, end: 20090101
  19. DEXAMETHASONE [Suspect]
     Indication: LYMPHOMA
     Route: 042
     Dates: start: 20090101, end: 20090101
  20. METHOTREXATE GENERIC [Suspect]
     Indication: LYMPHOMA
     Route: 016
     Dates: start: 20090821, end: 20090101
  21. METHOTREXATE GENERIC [Suspect]
     Route: 065
  22. ALLOPURINOL [Concomitant]
     Indication: DRUG USE FOR UNKNOWN INDICATION
     Route: 048
     Dates: start: 20091112, end: 20091121

REACTIONS (1)
  - RENAL FAILURE ACUTE [None]
